FAERS Safety Report 18628541 (Version 1)
Quarter: 2020Q4

REPORT INFORMATION
  Report Type: Spontaneous
  Country: SE (occurrence: SE)
  Receive Date: 20201217
  Receipt Date: 20201217
  Transmission Date: 20210114
  Serious: Yes (Other)
  Sender: FDA-Public Use
  Company Number: SE-TEVA-2020-SE-1858636

PATIENT
  Age: 37 Year
  Sex: Female
  Weight: 73 kg

DRUGS (1)
  1. PAROXETINE. [Suspect]
     Active Substance: PAROXETINE
     Indication: GENERALISED ANXIETY DISORDER
     Dosage: 20 MILLIGRAM DAILY;
     Dates: start: 202002, end: 202010

REACTIONS (3)
  - Arthralgia [Recovered/Resolved with Sequelae]
  - Condition aggravated [Recovered/Resolved with Sequelae]
  - Hypergammaglobulinaemia [Recovered/Resolved with Sequelae]

NARRATIVE: CASE EVENT DATE: 2020
